FAERS Safety Report 8512842-1 (Version None)
Quarter: 2012Q3

REPORT INFORMATION
  Report Type: 
  Country: None (occurrence: None)
  Receive Date: 20120716
  Receipt Date: 20120709
  Transmission Date: 20120928
  Serious: Yes (Hospitalization, Other)
  Sender: FDA-Public Use
  Company Number: US-B.I. PHARMACEUTICALS,INC./RIDGEFIELD-2012-EU-03481GD

PATIENT
  Age: 82 Year
  Sex: Female

DRUGS (2)
  1. DABIGATRAN ETEXILATE [Suspect]
     Dosage: 150 MG
  2. DABIGATRAN ETEXILATE [Suspect]
     Dosage: 300 MG

REACTIONS (5)
  - HAEMOGLOBIN DECREASED [None]
  - ATRIAL FIBRILLATION [None]
  - EPISTAXIS [None]
  - CHEST PAIN [None]
  - HEART RATE INCREASED [None]
